FAERS Safety Report 11926746 (Version 3)
Quarter: 2016Q1

REPORT INFORMATION
  Report Type: Spontaneous
  Country: BE (occurrence: BE)
  Receive Date: 20160119
  Receipt Date: 20160302
  Transmission Date: 20160526
  Serious: Yes (Death, Hospitalization, Other)
  Sender: FDA-Public Use
  Company Number: BE-BAYER-2016-007735

PATIENT
  Age: 86 Year
  Sex: Male

DRUGS (1)
  1. XOFIGO [Suspect]
     Active Substance: RADIUM RA-223 DICHLORIDE
     Indication: METASTASES TO BONE
     Dosage: 3.900 MBQ, UNK
     Dates: start: 20151218, end: 20151218

REACTIONS (8)
  - Death [Fatal]
  - Acute kidney injury [None]
  - Cerebrovascular accident [None]
  - Sepsis [None]
  - General physical health deterioration [None]
  - Brain neoplasm [None]
  - Coma [None]
  - Meningitis [None]

NARRATIVE: CASE EVENT DATE: 20160112
